FAERS Safety Report 7206874-3 (Version None)
Quarter: 2011Q1

REPORT INFORMATION
  Report Type: 
  Country: None (occurrence: None)
  Receive Date: 20110103
  Receipt Date: 20101224
  Transmission Date: 20110831
  Serious: Yes (Hospitalization, Other)
  Sender: FDA-Public Use
  Company Number: FR-ABBOTT-10P-056-0693751-01

PATIENT
  Sex: Female

DRUGS (8)
  1. HUMIRA [Suspect]
     Route: 058
     Dates: start: 20091207, end: 20100315
  2. ENTOCORT EC [Concomitant]
     Indication: CROHN'S DISEASE
     Dates: start: 20090208
  3. ACETAMINOPHEN AND TRAMADOL HCL [Concomitant]
     Indication: ABDOMINAL PAIN
     Dates: start: 20090205
  4. HUMIRA [Suspect]
     Indication: CROHN'S DISEASE
     Dosage: BASELINE
     Route: 058
     Dates: start: 20081117, end: 20081117
  5. HUMIRA [Suspect]
     Route: 058
     Dates: start: 20081201
  6. SPASFON [Concomitant]
     Indication: ABDOMINAL PAIN
     Dates: start: 20090131
  7. HUMIRA [Suspect]
     Route: 058
     Dates: start: 20090202
  8. DEBRIDAT [Concomitant]
     Indication: ABDOMINAL PAIN
     Dates: start: 20090131

REACTIONS (1)
  - PERITONITIS [None]
